FAERS Safety Report 6678617-3 (Version None)
Quarter: 2010Q2

REPORT INFORMATION
  Report Type: 
  Country: None (occurrence: None)
  Receive Date: 20100413
  Receipt Date: 20100401
  Transmission Date: 20101027
  Serious: No
  Sender: FDA-Public Use
  Company Number: US-ROXANE LABORATORIES, INC.-2010-RO-00367RO

PATIENT
  Sex: Female

DRUGS (2)
  1. CLOTRIMAZOLE [Suspect]
     Indication: ORAL DISCOMFORT
     Route: 048
     Dates: start: 20100331
  2. XANAX [Concomitant]

REACTIONS (1)
  - DRUG INEFFECTIVE [None]
